FAERS Safety Report 8755788 (Version 8)
Quarter: 2013Q1

REPORT INFORMATION
  Report Type: Report from Study
  Country: US (occurrence: US)
  Receive Date: 20120827
  Receipt Date: 20130122
  Transmission Date: 20140127
  Serious: Yes (Other)
  Sender: FDA-Public Use
  Company Number: US-ROCHE-1104940

PATIENT
  Age: 47 Year
  Sex: Male

DRUGS (6)
  1. PEG-INTERFERON ALFA 2A [Suspect]
     Indication: CHRONIC HEPATITIS C
     Route: 058
     Dates: start: 20110913, end: 20111205
  2. RIBAVIRIN [Suspect]
     Indication: CHRONIC HEPATITIS C
     Route: 048
     Dates: start: 20110913, end: 20111208
  3. INX-08189 [Suspect]
     Indication: CHRONIC HEPATITIS C
     Route: 048
     Dates: start: 20110913, end: 20111208
  4. ASPIRIN [Concomitant]
     Route: 065
     Dates: start: 20120227
  5. FUROSEMIDE [Concomitant]
  6. CARVEDILOL [Concomitant]
     Route: 065

REACTIONS (1)
  - Cardiomyopathy [Unknown]
